FAERS Safety Report 5004613-8 (Version None)
Quarter: 2006Q2

REPORT INFORMATION
  Report Type: 
  Country: None (occurrence: None)
  Receive Date: 20060516
  Receipt Date: 20060516
  Transmission Date: 20061013
  Serious: Yes (Life-Threatening, Hospitalization)
  Sender: FDA-Public Use
  Company Number: None

PATIENT
  Age: 61 Year
  Sex: Male
  Weight: 101.8325 kg

DRUGS (2)
  1. BENZOCAINE 20% -HURRICAINE SPRAY 20% [Suspect]
     Indication: DIAGNOSTIC PROCEDURE
     Dosage: OROPHARINGEAL
     Route: 049
     Dates: start: 20050127, end: 20050127
  2. METHYLENE BLUE [Concomitant]

REACTIONS (3)
  - METHAEMOGLOBINAEMIA [None]
  - OXYGEN SATURATION DECREASED [None]
  - POST PROCEDURAL COMPLICATION [None]
